FAERS Safety Report 5444683-6 (Version None)
Quarter: 2007Q3

REPORT INFORMATION
  Report Type: 
  Country: None (occurrence: None)
  Receive Date: 20070906
  Receipt Date: 20070302
  Transmission Date: 20080115
  Serious: No
  Sender: FDA-Public Use
  Company Number: A0637616A

PATIENT
  Age: 82 Year
  Sex: Female

DRUGS (4)
  1. REQUIP [Suspect]
     Indication: PARKINSON'S DISEASE
     Dosage: .25MG TWICE PER DAY
     Route: 048
     Dates: start: 20050101
  2. MIRAPEX [Suspect]
  3. SYNTHROID [Concomitant]
  4. ASPIRIN [Concomitant]

REACTIONS (5)
  - CONSTIPATION [None]
  - EXPIRED DRUG ADMINISTERED [None]
  - HEADACHE [None]
  - NIGHTMARE [None]
  - URINE OUTPUT INCREASED [None]
